FAERS Safety Report 5680170-8 (Version None)
Quarter: 2008Q1

REPORT INFORMATION
  Report Type: 
  Country: None (occurrence: None)
  Receive Date: 20080326
  Receipt Date: 20080313
  Transmission Date: 20080703
  Serious: Yes (Disabling, Other)
  Sender: FDA-Public Use
  Company Number: CA-ELI_LILLY_AND_COMPANY-CA200803003293

PATIENT
  Sex: Male

DRUGS (4)
  1. CIALIS [Suspect]
     Indication: ERECTILE DYSFUNCTION
     Dosage: UNK, UNK
     Route: 048
     Dates: start: 20080222, end: 20080101
  2. ASPIRIN [Concomitant]
     Dosage: 81 MG, UNK
     Route: 048
  3. LIPITOR [Concomitant]
     Indication: BLOOD CHOLESTEROL
     Dosage: UNK, UNK
     Route: 048
  4. ANTIHYPERTENSIVES [Concomitant]
     Indication: BLOOD PRESSURE
     Dosage: UNK, UNK
     Route: 048

REACTIONS (1)
  - OPTIC ISCHAEMIC NEUROPATHY [None]
